FAERS Safety Report 6104589-6 (Version None)
Quarter: 2009Q1

REPORT INFORMATION
  Report Type: 
  Country: None (occurrence: None)
  Receive Date: 20090305
  Receipt Date: 20090225
  Transmission Date: 20090719
  Serious: Yes (Other)
  Sender: FDA-Public Use
  Company Number: US-MERCK-0902USA04304

PATIENT
  Age: 61 Year
  Sex: Male

DRUGS (18)
  1. DECADRON [Suspect]
     Route: 048
  2. REVLIMID [Suspect]
     Indication: MULTIPLE MYELOMA
     Route: 048
     Dates: start: 20061004, end: 20061008
  3. REVLIMID [Suspect]
     Route: 048
     Dates: start: 20061009, end: 20080301
  4. REVLIMID [Suspect]
     Route: 048
     Dates: start: 20080325, end: 20081125
  5. REVLIMID [Suspect]
     Route: 048
     Dates: start: 20081205
  6. REVLIMID [Suspect]
     Indication: CARDIAC AMYLOIDOSIS
     Route: 048
     Dates: start: 20061004, end: 20061008
  7. REVLIMID [Suspect]
     Route: 048
     Dates: start: 20061009, end: 20080301
  8. REVLIMID [Suspect]
     Route: 048
     Dates: start: 20080325, end: 20081125
  9. REVLIMID [Suspect]
     Route: 048
     Dates: start: 20081205
  10. ASPIRIN [Concomitant]
     Route: 065
     Dates: end: 20081101
  11. LEVAQUIN [Concomitant]
     Route: 065
     Dates: start: 20081125
  12. LORAZEPAM [Concomitant]
     Route: 065
  13. EFFEXOR [Concomitant]
     Indication: DEPRESSION
     Route: 065
  14. KENALOG [Concomitant]
     Indication: STOMATITIS
     Route: 048
  15. LUNESTA [Concomitant]
     Route: 065
  16. NEXIUM [Concomitant]
     Indication: GASTROOESOPHAGEAL REFLUX DISEASE
     Route: 065
  17. PYRIDOXINE [Concomitant]
     Route: 065
  18. PAXIL [Concomitant]
     Indication: DEPRESSION
     Route: 065

REACTIONS (1)
  - PULMONARY EMBOLISM [None]
